FAERS Safety Report 9571266 (Version 3)
Quarter: 2013Q4

REPORT INFORMATION
  Report Type: Spontaneous
  Country: US (occurrence: US)
  Receive Date: 20131001
  Receipt Date: 20131015
  Transmission Date: 20140711
  Serious: Yes (Hospitalization, Other)
  Sender: FDA-Public Use
  Company Number: US-ASTELLAS-2013US008793

PATIENT
  Age: 56 Year
  Sex: Female
  Weight: 101 kg

DRUGS (6)
  1. PROGRAF [Suspect]
     Indication: LIVER TRANSPLANT
     Dosage: 1 MG, Q12 HOURS
     Route: 048
     Dates: start: 20130128, end: 20130810
  2. PROGRAF [Suspect]
     Dosage: 0.5 MG, Q12 HOURS
     Dates: start: 20130811, end: 20130825
  3. PROGRAF [Suspect]
     Dosage: 1 MG, Q12 HOURS
     Route: 048
     Dates: start: 20130826
  4. CELLCEPT /01275102/ [Suspect]
     Indication: LIVER TRANSPLANT
     Dosage: UNK
     Route: 048
     Dates: end: 20130810
  5. CELLCEPT /01275102/ [Suspect]
     Dosage: 500 MG, Q12 HOURS
     Route: 048
     Dates: start: 20130811, end: 201308
  6. SYNTHROID [Suspect]
     Indication: HYPOTHYROIDISM
     Dosage: 100 UG, UID/QD
     Route: 048

REACTIONS (23)
  - Klebsiella infection [Recovered/Resolved]
  - Renal failure acute [Recovering/Resolving]
  - Hypertension [Unknown]
  - Streptococcus test positive [Recovering/Resolving]
  - Urosepsis [Unknown]
  - Hepatitis C [Unknown]
  - Neutropenia [Recovered/Resolved]
  - Thrombocytopenia [Recovering/Resolving]
  - Headache [Recovering/Resolving]
  - Leukopenia [Unknown]
  - Immunosuppressant drug level increased [Recovered/Resolved]
  - Hypersplenism [Recovering/Resolving]
  - Cardiac murmur [Unknown]
  - Hypothyroidism [Unknown]
  - Shock [Recovered/Resolved]
  - Psoriasis [Unknown]
  - Overdose [Unknown]
  - Cardiac imaging procedure abnormal [Unknown]
  - Septic shock [Recovering/Resolving]
  - Asthenia [Unknown]
  - Hypotension [Unknown]
  - Insomnia [Unknown]
  - Oedema [Unknown]
